FAERS Safety Report 9520916 (Version 1)
Quarter: 2013Q3

REPORT INFORMATION
  Report Type: Spontaneous
  Country: US (occurrence: US)
  Receive Date: 20130913
  Receipt Date: 20130913
  Transmission Date: 20140515
  Serious: No
  Sender: FDA-Public Use
  Company Number: US-PFIZER INC-2013262250

PATIENT
  Sex: Male

DRUGS (1)
  1. NEURONTIN [Suspect]
     Indication: PAIN
     Dosage: 300 MG, UNK

REACTIONS (4)
  - Off label use [Unknown]
  - Drug ineffective [Unknown]
  - Exostosis [Unknown]
  - Pain in extremity [Unknown]
